FAERS Safety Report 15492064 (Version 1)
Quarter: 2018Q4

REPORT INFORMATION
  Report Type: Spontaneous
  Country: US (occurrence: US)
  Receive Date: 20181012
  Receipt Date: 20181012
  Transmission Date: 20190205
  Serious: No
  Sender: FDA-Public Use
  Company Number: PHEH2018US042751

PATIENT
  Sex: Female

DRUGS (2)
  1. ALEVE [Concomitant]
     Active Substance: NAPROXEN SODIUM
     Indication: PRODUCT USED FOR UNKNOWN INDICATION
     Route: 065
  2. DUREZOL [Suspect]
     Active Substance: DIFLUPREDNATE
     Indication: PRODUCT USED FOR UNKNOWN INDICATION
     Route: 047
     Dates: start: 20180824, end: 20180902

REACTIONS (5)
  - Nausea [Recovering/Resolving]
  - Insomnia [Recovering/Resolving]
  - Lethargy [Recovering/Resolving]
  - Palpitations [Recovering/Resolving]
  - Feeling abnormal [Unknown]
